FAERS Safety Report 25367701 (Version 1)
Quarter: 2025Q2

REPORT INFORMATION
  Report Type: Spontaneous
  Country: US (occurrence: US)
  Receive Date: 20250528
  Receipt Date: 20250528
  Transmission Date: 20250716
  Serious: Yes (Other)
  Sender: AUROBINDO
  Company Number: US-AUROBINDO-AUR-APL-2024-040333

PATIENT
  Age: 74 Year
  Sex: Female
  Weight: 95.2 kg

DRUGS (1)
  1. VENLAFAXINE HYDROCHLORIDE [Suspect]
     Active Substance: VENLAFAXINE HYDROCHLORIDE
     Indication: Depression
     Dosage: 1 DOSAGE FORM, ONCE A DAY (20 YEARS AGO )
     Route: 065

REACTIONS (6)
  - Loss of consciousness [Unknown]
  - Allergic reaction to excipient [Unknown]
  - Irritability [Unknown]
  - Dizziness [Unknown]
  - Anger [Unknown]
  - Feeling abnormal [Unknown]
